FAERS Safety Report 10243661 (Version 2)
Quarter: 2014Q2

REPORT INFORMATION
  Report Type: Spontaneous
  Country: US (occurrence: None)
  Receive Date: 20140616
  Receipt Date: 20140619
  Transmission Date: 20141212
  Serious: Yes (Hospitalization)
  Sender: FDA-Public Use
  Company Number: UNT-2014-001044

PATIENT
  Age: 65 Year
  Sex: Female
  Weight: 89.8 kg

DRUGS (5)
  1. REMODULIN [Suspect]
     Indication: PULMONARY ARTERIAL HYPERTENSION
     Dosage: 0.031 UG/KG, CONTINUING, IV DRIP
     Route: 041
     Dates: start: 20130718
  2. REMODULIN [Suspect]
     Dosage: 0.031 UG/KG, CONTINUING, IV DRIP
     Route: 041
     Dates: start: 20130718
  3. TRACLEER [Concomitant]
  4. REVATIO [Concomitant]
  5. COUMADIN [Concomitant]

REACTIONS (4)
  - Device leakage [None]
  - Drug dose omission [None]
  - Skin disorder [None]
  - Injection site erythema [None]
